FAERS Safety Report 23402202 (Version 1)
Quarter: 2024Q1

REPORT INFORMATION
  Report Type: Spontaneous
  Country: US (occurrence: US)
  Receive Date: 20240115
  Receipt Date: 20240115
  Transmission Date: 20240410
  Serious: No
  Sender: FDA-Public Use
  Company Number: US-PFIZER INC-202400007908

PATIENT
  Age: 67 Year
  Sex: Female

DRUGS (7)
  1. PAXLOVID [Suspect]
     Active Substance: NIRMATRELVIR\RITONAVIR
     Indication: COVID-19 treatment
     Dosage: (TWO NIRMATRELVIR TABLETS AND ONE RITONAVIR TABLET TOGETHER ), 2X/DAY
     Route: 048
     Dates: start: 20240106
  2. LOSARTAN [Concomitant]
     Active Substance: LOSARTAN
     Indication: Blood pressure abnormal
     Dosage: 50 MG, 2X/DAY
     Route: 048
  3. TRIAMTERENE [Concomitant]
     Active Substance: TRIAMTERENE
     Indication: Blood pressure abnormal
     Dosage: (37.5MG/ 25MG), 1X/DAY
     Route: 048
  4. BERBERINE [Concomitant]
     Active Substance: BERBERINE
     Indication: Blood cholesterol abnormal
     Dosage: 1000 MG, 2X/DAY
     Route: 048
  5. BERBERINE [Concomitant]
     Active Substance: BERBERINE
     Indication: Diabetes mellitus
  6. CHROMIUM PICOLINATE [Concomitant]
     Active Substance: CHROMIUM PICOLINATE
     Dosage: 200 MG, 1X/DAY
     Route: 048
  7. CO-Q-10 PLUS [Concomitant]
     Dosage: 100 MG, 1X/DAY
     Route: 048

REACTIONS (7)
  - Dizziness [Unknown]
  - Brain fog [Unknown]
  - Asthenia [Not Recovered/Not Resolved]
  - Fatigue [Unknown]
  - Dysgeusia [Not Recovered/Not Resolved]
  - Nasal congestion [Unknown]
  - Oropharyngeal pain [Unknown]

NARRATIVE: CASE EVENT DATE: 20240106
